FAERS Safety Report 5657129-X (Version None)
Quarter: 2008Q1

REPORT INFORMATION
  Report Type: 
  Country: None (occurrence: None)
  Receive Date: 20080219
  Receipt Date: 20071106
  Transmission Date: 20080703
  Serious: No
  Sender: FDA-Public Use
  Company Number: WAES 0711USA01455

PATIENT
  Age: 74 Year
  Sex: Male

DRUGS (7)
  1. JANUVIA [Suspect]
     Indication: DIABETES MELLITUS
     Dosage: 100 MG/DAILY/PO
     Route: 048
     Dates: start: 20071009
  2. CADUET [Concomitant]
  3. COUMADIN [Concomitant]
  4. STARLIX [Concomitant]
  5. ASPIRIN [Concomitant]
  6. LISINOPRIL [Concomitant]
  7. METFORMIN [Concomitant]

REACTIONS (1)
  - BLOOD TEST ABNORMAL [None]
